FAERS Safety Report 8808752 (Version 1)
Quarter: 2012Q4

REPORT INFORMATION
  Report Type: 
  Country: GB (occurrence: GB)
  Receive Date: 20120926
  Receipt Date: 20120926
  Transmission Date: 20130627
  Serious: Yes (Other)
  Sender: FDA-Public Use
  Company Number: GB-JNJFOC-20120909071

PATIENT
  Age: 47 Year
  Sex: Female

DRUGS (1)
  1. NICORETTE [Suspect]
     Indication: SMOKING CESSATION THERAPY
     Dosage: 10-15 Microtabs per day
     Route: 048
     Dates: start: 201102

REACTIONS (6)
  - Nicotine dependence [Unknown]
  - Incorrect drug administration duration [Unknown]
  - Dyspepsia [Unknown]
  - Tooth extraction [Unknown]
  - Gingival disorder [Unknown]
  - Tooth disorder [Unknown]
